FAERS Safety Report 4690563-3 (Version None)
Quarter: 2005Q2

REPORT INFORMATION
  Report Type: 
  Country: None (occurrence: None)
  Receive Date: 20050614
  Receipt Date: 20050614
  Transmission Date: 20051028
  Serious: No
  Sender: FDA-Public Use
  Company Number: None

PATIENT
  Sex: Female

DRUGS (1)
  1. FENTANYL [Suspect]
     Indication: PAIN
     Dosage: 100MCG,HR   Q 72 HOURS   TRANSDERMA
     Route: 062
     Dates: start: 20050531, end: 20050613

REACTIONS (2)
  - DRUG LEVEL CHANGED [None]
  - PHARMACEUTICAL PRODUCT COMPLAINT [None]
